FAERS Safety Report 12207239 (Version 1)
Quarter: 2016Q1

REPORT INFORMATION
  Report Type: Spontaneous
  Country: US (occurrence: None)
  Receive Date: 20160323
  Receipt Date: 20160323
  Transmission Date: 20160526
  Serious: Yes (Hospitalization)
  Sender: FDA-Public Use
  Company Number: None

PATIENT
  Age: 66 Year
  Sex: Male

DRUGS (24)
  1. ACETAMINOPHEN. [Concomitant]
     Active Substance: ACETAMINOPHEN
  2. AMIODARONE [Concomitant]
     Active Substance: AMIODARONE
  3. LATANOPROST. [Concomitant]
     Active Substance: LATANOPROST
  4. LOPERAMIDE [Concomitant]
     Active Substance: LOPERAMIDE
  5. SERTRALINE [Concomitant]
     Active Substance: SERTRALINE HYDROCHLORIDE
  6. INSULIN GLARGINE [Concomitant]
     Active Substance: INSULIN GLARGINE
  7. MILK OF MAGNESIA [Concomitant]
     Active Substance: MAGNESIUM HYDROXIDE
  8. TAMSULOSIN [Concomitant]
     Active Substance: TAMSULOSIN
  9. ALBUTEROL. [Concomitant]
     Active Substance: ALBUTEROL
  10. DORZOLOMIDE [Concomitant]
     Active Substance: DORZOLAMIDE
  11. PILOCARPINE. [Concomitant]
     Active Substance: PILOCARPINE
  12. METOPROLOL SUCCINATE. [Concomitant]
     Active Substance: METOPROLOL SUCCINATE
  13. WARFARIN [Suspect]
     Active Substance: WARFARIN
     Indication: ATRIAL FIBRILLATION
     Dosage: 4 MG EXCEPT 2 MG ON SUN/THUR
     Route: 048
  14. ASPIRIN. [Concomitant]
     Active Substance: ASPIRIN
  15. ATORVASTATIN [Concomitant]
     Active Substance: ATORVASTATIN
  16. CALCITRIOL. [Concomitant]
     Active Substance: CALCITRIOL
  17. LOSARTAN. [Concomitant]
     Active Substance: LOSARTAN
  18. CHOLECALCIFEROL [Concomitant]
     Active Substance: CHOLECALCIFEROL
  19. CLOPIDOGREL [Concomitant]
     Active Substance: CLOPIDOGREL BISULFATE
  20. FUROSEMIDE. [Concomitant]
     Active Substance: FUROSEMIDE
  21. SENNA [Concomitant]
     Active Substance: SENNA LEAF\SENNOSIDES\SENNOSIDES A AND B
  22. FINASTERIDE. [Concomitant]
     Active Substance: FINASTERIDE
  23. INSULIN ASPART [Concomitant]
     Active Substance: INSULIN ASPART
  24. LORATADINE. [Concomitant]
     Active Substance: LORATADINE

REACTIONS (6)
  - Haemoptysis [None]
  - Hypotension [None]
  - Mouth haemorrhage [None]
  - Haemoglobin decreased [None]
  - Gingival bleeding [None]
  - International normalised ratio increased [None]

NARRATIVE: CASE EVENT DATE: 20160205
